FAERS Safety Report 8838502 (Version 1)
Quarter: 2012Q4

REPORT INFORMATION
  Report Type: 
  Country: US (occurrence: US)
  Receive Date: 20121012
  Receipt Date: 20121012
  Transmission Date: 20130627
  Serious: No
  Sender: FDA-Public Use
  Company Number: US-PFIZER INC-2012253795

PATIENT
  Age: 48 Year
  Sex: Female
  Weight: 54.42 kg

DRUGS (9)
  1. LYRICA [Suspect]
     Indication: FIBROMYALGIA
     Dosage: 75 mg, 1x/day
     Route: 048
     Dates: start: 201209
  2. KLOR-CON [Concomitant]
     Dosage: UNK
  3. PROPRANOLOL [Concomitant]
     Dosage: UNK
  4. DEXILANT [Concomitant]
     Dosage: UNK
  5. OXYCODONE [Concomitant]
     Dosage: UNK, as needed
  6. LAMOTRIGINE [Concomitant]
     Dosage: UNK
  7. ESTRADIOL [Concomitant]
     Dosage: UNK
  8. CLONAZEPAM [Concomitant]
     Dosage: UNK
  9. FLUOXETINE [Concomitant]
     Dosage: UNK

REACTIONS (1)
  - Back pain [Recovering/Resolving]
